FAERS Safety Report 24306607 (Version 1)
Quarter: 2024Q3

REPORT INFORMATION
  Report Type: Spontaneous
  Country: US (occurrence: None)
  Receive Date: 20240910
  Receipt Date: 20240910
  Transmission Date: 20241017
  Serious: Yes (Death)
  Sender: Public
  Company Number: None

PATIENT
  Age: 80 Year
  Sex: Male

DRUGS (24)
  1. DUPIXENT [Suspect]
     Active Substance: DUPILUMAB
     Indication: Dermatitis atopic
     Dosage: OTHER FREQUENCY : EVERY 2 WEEKS;?
     Route: 058
     Dates: start: 20230406, end: 20240816
  2. BUSPIRONE [Concomitant]
     Active Substance: BUSPIRONE HYDROCHLORIDE
  3. CLOPIDOGREL [Concomitant]
     Active Substance: CLOPIDOGREL BISULFATE
  4. CLOTRIMAZOLE-BETAMETHASONE CRM [Concomitant]
  5. CRESTOR [Concomitant]
     Active Substance: ROSUVASTATIN CALCIUM
  6. DIAZEPAM [Concomitant]
     Active Substance: DIAZEPAM
  7. FINASTERIDE [Concomitant]
     Active Substance: FINASTERIDE
  8. LINZESS [Concomitant]
  9. METFORMIN [Concomitant]
     Active Substance: METFORMIN HYDROCHLORIDE
  10. PROCHLORPERAZINE [Concomitant]
     Active Substance: PROCHLORPERAZINE
  11. SERTRALINE [Concomitant]
     Active Substance: SERTRALINE HYDROCHLORIDE
  12. TOPROLXL [Concomitant]
  13. TORSEMIDE [Concomitant]
     Active Substance: TORSEMIDE
  14. TRELEGY ELLIPTA [Concomitant]
     Active Substance: FLUTICASONE FUROATE\UMECLIDINIUM BROMIDE\VILANTEROL TRIFENATATE
  15. ALBUTEROL HFA INH [Concomitant]
  16. VITAMIN D [Concomitant]
     Active Substance: VITAMIN D NOS
  17. AZELASTINE [Concomitant]
     Active Substance: AZELASTINE\AZELASTINE HYDROCHLORIDE
  18. CYMBALTA [Concomitant]
     Active Substance: DULOXETINE HYDROCHLORIDE
  19. GABAPENTIN [Concomitant]
     Active Substance: GABAPENTIN
  20. HYDROCORTISONE [Concomitant]
     Active Substance: HYDROCORTISONE\HYDROCORTISONE ACETATE
  21. KETOROLAC [Concomitant]
     Active Substance: KETOROLAC TROMETHAMINE
  22. MONTELUKAST [Concomitant]
     Active Substance: MONTELUKAST SODIUM
  23. OMEPRAZOLE [Concomitant]
     Active Substance: OMEPRAZOLE
  24. TOPIRAMATE [Concomitant]
     Active Substance: TOPIRAMATE

REACTIONS (2)
  - Pneumonia [None]
  - Sepsis [None]

NARRATIVE: CASE EVENT DATE: 20240816
